FAERS Safety Report 5699237-3 (Version None)
Quarter: 2008Q2

REPORT INFORMATION
  Report Type: 
  Country: None (occurrence: None)
  Receive Date: 20080407
  Receipt Date: 20080407
  Transmission Date: 20081010
  Serious: Yes (Hospitalization)
  Sender: FDA-Public Use
  Company Number: None

PATIENT
  Sex: Female
  Weight: 79.8 kg

DRUGS (2)
  1. ABRAXANE [Suspect]
     Indication: METASTATIC MALIGNANT MELANOMA
     Dosage: 288 MG 3X/MONTH IV
     Route: 042
     Dates: start: 20080108, end: 20080319
  2. AVASTIN [Suspect]
     Indication: METASTATIC MALIGNANT MELANOMA
     Dosage: 850 MG 2X/MONTH IV
     Route: 042
     Dates: start: 20080108, end: 20080319

REACTIONS (7)
  - CHILLS [None]
  - DIARRHOEA [None]
  - DYSURIA [None]
  - FATIGUE [None]
  - INFLUENZA LIKE ILLNESS [None]
  - RENAL FAILURE ACUTE [None]
  - RENAL FAILURE CHRONIC [None]
